FAERS Safety Report 8716337 (Version 4)
Quarter: 2013Q4

REPORT INFORMATION
  Report Type: Report from Study
  Country: JP (occurrence: JP)
  Receive Date: 20120810
  Receipt Date: 20131031
  Transmission Date: 20140711
  Serious: Yes (Hospitalization)
  Sender: FDA-Public Use
  Company Number: JP-009507513-1111USA01707

PATIENT
  Age: 63 Year
  Sex: Male
  Weight: 57.5 kg

DRUGS (10)
  1. PLACEBO [Suspect]
     Route: 048
     Dates: start: 20110902
  2. PEGINTRON [Suspect]
     Indication: CHRONIC HEPATITIS C
     Dosage: 80 MICROGRAM, QW
     Route: 058
     Dates: start: 20110902
  3. REBETOL [Suspect]
     Indication: HEPATITIS C
     Dosage: 600 MG, QD
     Route: 048
     Dates: start: 20110902
  4. BASEN OD [Concomitant]
     Indication: DIABETES MELLITUS
     Dosage: 0.2 MG, TID
     Route: 048
     Dates: start: 20110803, end: 20110915
  5. KINEDAK [Concomitant]
     Indication: PROPHYLAXIS
     Dosage: 50 MG, TID
     Route: 048
     Dates: start: 20110803, end: 20120805
  6. MAGLAX [Concomitant]
     Indication: CONSTIPATION
     Dosage: 1500 MG, PRN
     Route: 048
     Dates: start: 20110803
  7. MYSLEE [Concomitant]
     Indication: INSOMNIA
     Dosage: 10 MG, PRN
     Route: 048
     Dates: start: 20110803, end: 20120215
  8. EURODIN (ESTAZOLAM) [Concomitant]
     Indication: INSOMNIA
     Dosage: 4 MG, PRN
     Route: 048
     Dates: start: 20110803, end: 20120708
  9. REBAMIPIDE OD [Concomitant]
     Indication: GASTRITIS PROPHYLAXIS
     Dosage: 100 MG, PRN
     Route: 048
     Dates: start: 20110902
  10. REBAMIPIDE OD [Concomitant]
     Indication: DYSPEPSIA

REACTIONS (1)
  - Fatigue [Recovered/Resolved]
